FAERS Safety Report 20505555 (Version 1)
Quarter: 2022Q1

REPORT INFORMATION
  Report Type: Spontaneous
  Country: US (occurrence: US)
  Receive Date: 20220223
  Receipt Date: 20220223
  Transmission Date: 20220423
  Serious: No
  Sender: FDA-Public Use
  Company Number: US-drreddys-SPO/USA/22/0147033

PATIENT
  Sex: Female

DRUGS (1)
  1. DOANS EXTRA STRENGTH [Suspect]
     Active Substance: MAGNESIUM SALICYLATE
     Indication: Product used for unknown indication
     Dosage: TOOK 2

REACTIONS (1)
  - Adverse drug reaction [Unknown]
